FAERS Safety Report 24198900 (Version 1)
Quarter: 2024Q3

REPORT INFORMATION
  Report Type: Spontaneous
  Country: JP (occurrence: JP)
  Receive Date: 20240812
  Receipt Date: 20240812
  Transmission Date: 20241016
  Serious: Yes (Death, Life-Threatening, Hospitalization, Other)
  Sender: MICRO LABS
  Company Number: JP-862174955-ML2024-04371

PATIENT
  Age: 45 Year
  Sex: Female
  Weight: 90 kg

DRUGS (1)
  1. METFORMIN [Suspect]
     Active Substance: METFORMIN HYDROCHLORIDE
     Indication: Diabetes mellitus
     Dosage: HAD INGESTED APPROXIMATELY 71 G OF METFORMIN, BASED ON AN EMPTY MEDICINE PACKET FOUND IN HER HOME.

REACTIONS (11)
  - Toxicity to various agents [Fatal]
  - Distributive shock [Fatal]
  - Haemodynamic instability [Fatal]
  - Cardiac arrest [Fatal]
  - Hypoxic-ischaemic encephalopathy [Fatal]
  - Seizure [Fatal]
  - Circulatory collapse [Fatal]
  - Metabolic acidosis [Fatal]
  - Hypotension [Fatal]
  - Lactic acidosis [Fatal]
  - Overdose [Fatal]
